FAERS Safety Report 12765988 (Version 1)
Quarter: 2016Q3

REPORT INFORMATION
  Report Type: Spontaneous
  Country: US (occurrence: US)
  Receive Date: 20160921
  Receipt Date: 20160921
  Transmission Date: 20161109
  Serious: Yes (Other)
  Sender: FDA-Public Use
  Company Number: US-JNJFOC-20160911418

PATIENT
  Age: 78 Year
  Sex: Male
  Weight: 89.34 kg

DRUGS (4)
  1. XARELTO [Suspect]
     Active Substance: RIVAROXABAN
     Indication: PRODUCT USED FOR UNKNOWN INDICATION
     Route: 048
  2. INULIN [Suspect]
     Active Substance: INULIN
     Indication: GASTROINTESTINAL DISORDER
     Route: 048
     Dates: start: 201608
  3. MULTIVITAMIN WITH MINERALS [Concomitant]
     Active Substance: MINERALS\VITAMINS
     Route: 065
  4. INULIN [Suspect]
     Active Substance: INULIN
     Indication: CONSTIPATION
     Route: 048
     Dates: start: 201608

REACTIONS (3)
  - Off label use [Unknown]
  - Constipation [Unknown]
  - Rectal haemorrhage [Not Recovered/Not Resolved]

NARRATIVE: CASE EVENT DATE: 201608
